FAERS Safety Report 4498171-4 (Version None)
Quarter: 2004Q3

REPORT INFORMATION
  Report Type: 
  Country: None (occurrence: None)
  Receive Date: 20040927
  Receipt Date: 20040604
  Transmission Date: 20050211
  Serious: No
  Sender: FDA-Public Use
  Company Number: USA040669351

PATIENT
  Age: 43 Year
  Sex: Male

DRUGS (1)
  1. STRATTERA [Suspect]
     Dosage: 40 MG/ 1 DAY
     Dates: start: 20040301

REACTIONS (3)
  - CLUSTER HEADACHE [None]
  - LACRIMATION INCREASED [None]
  - NASAL CONGESTION [None]
